FAERS Safety Report 6326072-5 (Version None)
Quarter: 2009Q3

REPORT INFORMATION
  Report Type: 
  Country: None (occurrence: None)
  Receive Date: 20090824
  Receipt Date: 20090819
  Transmission Date: 20100115
  Serious: Yes (Other)
  Sender: FDA-Public Use
  Company Number: US-JNJFOC-20090806770

PATIENT
  Age: 40 Year
  Sex: Male

DRUGS (6)
  1. INVEGA [Suspect]
     Route: 048
  2. INVEGA [Suspect]
     Route: 048
  3. INVEGA [Suspect]
     Indication: SCHIZOAFFECTIVE DISORDER
     Route: 048
  4. MELLARIL [Concomitant]
     Indication: SCHIZOAFFECTIVE DISORDER
  5. GEODON [Concomitant]
     Indication: SCHIZOAFFECTIVE DISORDER
  6. LITHIUM CARBONATE [Concomitant]
     Indication: SCHIZOAFFECTIVE DISORDER

REACTIONS (2)
  - TARDIVE DYSKINESIA [None]
  - TREMOR [None]
